FAERS Safety Report 5002621-4 (Version None)
Quarter: 2006Q2

REPORT INFORMATION
  Report Type: 
  Country: None (occurrence: None)
  Receive Date: 20060510
  Receipt Date: 20060424
  Transmission Date: 20061013
  Serious: Yes (Hospitalization)
  Sender: FDA-Public Use
  Company Number: DSA_28096_2006

PATIENT
  Age: 30 Year
  Sex: Female

DRUGS (5)
  1. TAVOR [Suspect]
     Dosage: 10 MG ONCE PO
     Route: 048
     Dates: start: 20060424, end: 20060424
  2. MIRTAZAPINE [Suspect]
     Dosage: 150 MG ONCE PO
     Route: 048
     Dates: start: 20060424, end: 20060424
  3. VENLAFAXINE HCL [Suspect]
     Dosage: 525 MG ONCE PO
     Route: 048
     Dates: start: 20060424, end: 20060424
  4. ZYBAN [Suspect]
     Dosage: DF ONCE PO
     Route: 048
     Dates: start: 20060424, end: 20060424
  5. ALCOHOL [Suspect]
     Dosage: DF ONCE PO
     Route: 048
     Dates: start: 20060424, end: 20060424

REACTIONS (4)
  - BLOOD ALCOHOL INCREASED [None]
  - MULTIPLE DRUG OVERDOSE [None]
  - SUICIDE ATTEMPT [None]
  - VOMITING [None]
